FAERS Safety Report 20227998 (Version 3)
Quarter: 2022Q1

REPORT INFORMATION
  Report Type: Report from Study
  Country: US (occurrence: US)
  Receive Date: 20211224
  Receipt Date: 20220211
  Transmission Date: 20220423
  Serious: Yes (Death)
  Sender: FDA-Public Use
  Company Number: US-JNJFOC-20211253471

PATIENT
  Age: 79 Year
  Sex: Female
  Weight: 63.106 kg

DRUGS (4)
  1. SPRAVATO [Suspect]
     Active Substance: ESKETAMINE
     Indication: Depression
     Dosage: 28 MG, 4 TOTAL DOSES
     Dates: start: 20200818, end: 20200828
  2. SPRAVATO [Suspect]
     Active Substance: ESKETAMINE
     Indication: Major depression
     Dosage: 56 MG, 31 TOTAL DOSES
     Dates: start: 20200901, end: 20210930
  3. SPRAVATO [Suspect]
     Active Substance: ESKETAMINE
  4. ZOLOFT [Concomitant]
     Active Substance: SERTRALINE HYDROCHLORIDE
     Indication: Depression
     Dosage: NOV-2021 (END DATE)
     Route: 065
     Dates: start: 201908

REACTIONS (1)
  - Arteriosclerosis [Fatal]

NARRATIVE: CASE EVENT DATE: 20210101
